FAERS Safety Report 4576068-9 (Version None)
Quarter: 2005Q1

REPORT INFORMATION
  Report Type: 
  Country: None (occurrence: None)
  Receive Date: 20050209
  Receipt Date: 20050126
  Transmission Date: 20050727
  Serious: Yes (Hospitalization, Other)
  Sender: FDA-Public Use
  Company Number: PHBS2005JP01535

PATIENT
  Age: 56 Year
  Sex: Male

DRUGS (3)
  1. TACROLIMUS [Concomitant]
     Indication: RENAL TRANSPLANT
     Dates: end: 20040101
  2. CYCLOSPORINE [Suspect]
     Indication: RENAL TRANSPLANT
     Route: 065
     Dates: start: 20040101, end: 20040101
  3. IODINE PRODUCTS [Suspect]

REACTIONS (12)
  - BLOOD CREATININE INCREASED [None]
  - COMPLICATIONS OF TRANSPLANTED KIDNEY [None]
  - CYTOMEGALOVIRUS VIRAEMIA [None]
  - DIALYSIS [None]
  - GENERALISED OEDEMA [None]
  - INCISION SITE HAEMORRHAGE [None]
  - PLEURAL EFFUSION [None]
  - POISONING [None]
  - POST PROCEDURAL COMPLICATION [None]
  - THERAPEUTIC AGENT TOXICITY [None]
  - URINE OUTPUT DECREASED [None]
  - WOUND INFECTION STAPHYLOCOCCAL [None]
